FAERS Safety Report 9561786 (Version 1)
Quarter: 2013Q3

REPORT INFORMATION
  Report Type: Spontaneous
  Country: JP (occurrence: None)
  Receive Date: 20130925
  Receipt Date: 20130925
  Transmission Date: 20140515
  Serious: Yes (Hospitalization)
  Sender: FDA-Public Use
  Company Number: FK201304327

PATIENT
  Age: 56 Year
  Sex: Male

DRUGS (6)
  1. OXALIPLATIN [Suspect]
     Indication: RECTAL CANCER
     Dosage: 85 MG/M2
  2. OXALIPLATIN [Suspect]
     Indication: METASTASES TO LUNG
     Dosage: 85 MG/M2
  3. LEUCOVORIN CALCIUM [Suspect]
     Indication: RECTAL CANCER
     Dosage: 200 MG/M2
  4. LEUCOVORIN CALCIUM [Suspect]
     Indication: METASTASES TO LUNG
     Dosage: 200 MG/M2
  5. FLUOROURACIL [Suspect]
     Indication: RECTAL CANCER
     Dosage: 400 MG/M2, INTRAVENOUS BOLUS
     Route: 040
  6. FLUOROURACIL [Suspect]
     Indication: METASTASES TO LUNG
     Dosage: 400 MG/M2, INTRAVENOUS BOLUS
     Route: 040

REACTIONS (8)
  - Splenomegaly [None]
  - Thrombocytopenia [None]
  - Nervous system disorder [None]
  - Metastasis [None]
  - Hypersplenism [None]
  - Stoma site haemorrhage [None]
  - Hepatic enzyme increased [None]
  - Metastases to central nervous system [None]
